FAERS Safety Report 24221582 (Version 1)
Quarter: 2024Q3

REPORT INFORMATION
  Report Type: Report from Study
  Country: US (occurrence: None)
  Receive Date: 20240819
  Receipt Date: 20240819
  Transmission Date: 20241016
  Serious: Yes (Other)
  Sender: ASTRAZENECA
  Company Number: 2023A169505

PATIENT
  Sex: Female

DRUGS (12)
  1. LYNPARZA [Suspect]
     Active Substance: OLAPARIB
     Indication: Fallopian tube cancer
     Dosage: TAKE 1 TABLET BY MOUTH EVERY MORNING AND 2 TABLETS EVERY EVENING150.0MG UNKNOWN
     Route: 048
     Dates: start: 202210
  2. LYNPARZA [Suspect]
     Active Substance: OLAPARIB
     Indication: Fallopian tube cancer
     Dosage: TAKE 1 TABLET BY MOUTH EVERY MORNING AND 2 TABLETS EVERY EVENING150.0MG UNKNOWN
     Route: 048
     Dates: start: 202210
  3. LYNPARZA [Suspect]
     Active Substance: OLAPARIB
     Indication: Ovarian cancer
     Dosage: TAKE 1 TABLET BY MOUTH EVERY MORNING AND 2 TABLETS EVERY EVENING150.0MG UNKNOWN
     Route: 048
     Dates: start: 202210
  4. LYNPARZA [Suspect]
     Active Substance: OLAPARIB
     Indication: Fallopian tube cancer
     Dosage: 300.0MG UNKNOWN
     Route: 048
     Dates: start: 20221008, end: 202307
  5. LYNPARZA [Suspect]
     Active Substance: OLAPARIB
     Indication: Fallopian tube cancer
     Dosage: 300.0MG UNKNOWN
     Route: 048
     Dates: start: 20221008, end: 202307
  6. LYNPARZA [Suspect]
     Active Substance: OLAPARIB
     Indication: Ovarian cancer
     Dosage: 300.0MG UNKNOWN
     Route: 048
     Dates: start: 20221008, end: 202307
  7. LYNPARZA [Suspect]
     Active Substance: OLAPARIB
     Indication: Fallopian tube cancer
     Dosage: 150.0MG UNKNOWN
     Route: 048
     Dates: start: 20221107
  8. LYNPARZA [Suspect]
     Active Substance: OLAPARIB
     Indication: Fallopian tube cancer
     Dosage: 150.0MG UNKNOWN
     Route: 048
     Dates: start: 20221107
  9. LYNPARZA [Suspect]
     Active Substance: OLAPARIB
     Indication: Ovarian cancer
     Dosage: 150.0MG UNKNOWN
     Route: 048
     Dates: start: 20221107
  10. LYNPARZA [Suspect]
     Active Substance: OLAPARIB
     Indication: Fallopian tube cancer
     Dosage: 450.0MG UNKNOWN
     Route: 048
     Dates: start: 202303
  11. LYNPARZA [Suspect]
     Active Substance: OLAPARIB
     Indication: Fallopian tube cancer
     Dosage: 450.0MG UNKNOWN
     Route: 048
     Dates: start: 202303
  12. LYNPARZA [Suspect]
     Active Substance: OLAPARIB
     Indication: Ovarian cancer
     Dosage: 450.0MG UNKNOWN
     Route: 048
     Dates: start: 202303

REACTIONS (3)
  - Pneumonitis [Recovering/Resolving]
  - Heart rate increased [Recovering/Resolving]
  - Oedema peripheral [Recovering/Resolving]
